FAERS Safety Report 10145765 (Version 1)
Quarter: 2014Q2

REPORT INFORMATION
  Report Type: Spontaneous
  Country: US (occurrence: US)
  Receive Date: 20140501
  Receipt Date: 20140501
  Transmission Date: 20141212
  Serious: No
  Sender: FDA-Public Use
  Company Number: US-ABBVIE-13P-163-1123598-00

PATIENT
  Age: 70 Year
  Sex: Male
  Weight: 76.27 kg

DRUGS (5)
  1. CREON [Suspect]
     Indication: PANCREATITIS CHRONIC
     Dosage: ONE CAPSULE BEFORE MEALS
     Dates: start: 201307
  2. ENSURE [Suspect]
     Indication: NUTRITIONAL SUPPLEMENTATION
     Dates: start: 201307
  3. ALTACE [Concomitant]
     Indication: PRODUCT USED FOR UNKNOWN INDICATION
  4. COREG [Concomitant]
     Indication: PRODUCT USED FOR UNKNOWN INDICATION
  5. CHOLESTEROL MEDICATION [Concomitant]
     Indication: BLOOD CHOLESTEROL ABNORMAL

REACTIONS (2)
  - Oropharyngeal pain [Recovered/Resolved]
  - Flatulence [Not Recovered/Not Resolved]
